FAERS Safety Report 19247070 (Version 4)
Quarter: 2021Q3

REPORT INFORMATION
  Report Type: Report from Study
  Country: GB (occurrence: GB)
  Receive Date: 20210512
  Receipt Date: 20210818
  Transmission Date: 20211014
  Serious: Yes (Other)
  Sender: FDA-Public Use
  Company Number: GB-ACCORD-223241

PATIENT
  Age: 76 Year
  Sex: Male

DRUGS (12)
  1. MADOPAR [Concomitant]
     Active Substance: BENSERAZIDE HYDROCHLORIDE\LEVODOPA
     Indication: PRODUCT USED FOR UNKNOWN INDICATION
     Dosage: 3 TIMES OVERNIGHT , 50/12.5MG
     Route: 048
  2. ROPINIROLE/ROPINIROLE HYDROCHLORIDE [Suspect]
     Active Substance: ROPINIROLE HYDROCHLORIDE
     Indication: PRODUCT USED FOR UNKNOWN INDICATION
     Route: 048
  3. ROPINIROLE/ROPINIROLE HYDROCHLORIDE [Suspect]
     Active Substance: ROPINIROLE HYDROCHLORIDE
     Indication: PARKINSON^S DISEASE
     Route: 048
  4. DUODOPA [Suspect]
     Active Substance: CARBIDOPA\LEVODOPA
     Indication: PARKINSON^S DISEASE
     Dosage: MORNING DOSE: 4.8ML, CONTINUOUS RATE: 0.8ML, EXTRA DOSE: 0.5ML
     Route: 050
  5. ROPINIROLE/ROPINIROLE HYDROCHLORIDE [Suspect]
     Active Substance: ROPINIROLE HYDROCHLORIDE
     Indication: PRODUCT USED FOR UNKNOWN INDICATION
     Route: 048
  6. DUODOPA [Suspect]
     Active Substance: CARBIDOPA\LEVODOPA
     Indication: PARKINSON^S DISEASE
     Dosage: 20MG/5MG; MORNING DOSE 1.8+3ML; CONTINUOUS RATE 0.8ML; EXTRA DOSE 0.5ML,16HRS
     Route: 050
  7. DUODOPA [Suspect]
     Active Substance: CARBIDOPA\LEVODOPA
     Indication: PRODUCT USED FOR UNKNOWN INDICATION
     Dosage: MORNING DOSE: 4.7ML, CONTINUOUS RATE: 1.8ML, EXTRA DOSE: 0.5ML, 16HRS
     Route: 050
  8. DUODOPA [Suspect]
     Active Substance: CARBIDOPA\LEVODOPA
     Indication: PARKINSON^S DISEASE
     Dosage: MORNING DOSE: 4.7ML, CONTINUOUS RATE: 1.2ML, EXTRA DOSE: 1 ML0.5ML,16HRS
     Route: 050
  9. DUODOPA [Suspect]
     Active Substance: CARBIDOPA\LEVODOPA
     Indication: PARKINSON^S DISEASE
     Dosage: MORNING DOSE: 4.7ML, CONTINUOUS RATE: 1.8ML, EXTRA DOSE: 0.5ML, 16HRS
     Route: 050
  10. MADOPAR [Concomitant]
     Active Substance: BENSERAZIDE HYDROCHLORIDE\LEVODOPA
     Indication: PARKINSON^S DISEASE
     Dosage: BD OVERNIGHT
     Route: 048
  11. DUODOPA [Suspect]
     Active Substance: CARBIDOPA\LEVODOPA
     Indication: PARKINSON^S DISEASE
     Dosage: CONTINUOUS RATE: 1.4 MLS0.5ML,16HRS
     Route: 050
  12. RASAGILINE/RASAGILINE MESYLATE [Concomitant]
     Active Substance: RASAGILINE MESYLATE
     Indication: PARKINSON^S DISEASE
     Route: 048

REACTIONS (16)
  - Rash [Recovered/Resolved]
  - On and off phenomenon [Not Recovered/Not Resolved]
  - Speech disorder [Unknown]
  - Hyperkinesia [Not Recovered/Not Resolved]
  - Freezing phenomenon [Not Recovered/Not Resolved]
  - Abdominal pain upper [Not Recovered/Not Resolved]
  - Drug ineffective [Unknown]
  - Muscle rigidity [Not Recovered/Not Resolved]
  - Paraesthesia [Unknown]
  - Lethargy [Unknown]
  - Pruritus [Recovered/Resolved]
  - Tremor [Recovered/Resolved]
  - Dyskinesia [Not Recovered/Not Resolved]
  - Groin pain [Not Recovered/Not Resolved]
  - Dystonia [Not Recovered/Not Resolved]
  - Mobility decreased [Unknown]

NARRATIVE: CASE EVENT DATE: 20210325
